FAERS Safety Report 18549082 (Version 1)
Quarter: 2020Q4

REPORT INFORMATION
  Report Type: Report from Study
  Country: None (occurrence: US)
  Receive Date: 20201126
  Receipt Date: 20201126
  Transmission Date: 20210114
  Serious: Yes (Other)
  Sender: FDA-Public Use
  Company Number: US-ABBVIE-20K-163-3660192-00

PATIENT
  Sex: Male

DRUGS (2)
  1. SKYRIZI [Suspect]
     Active Substance: RISANKIZUMAB-RZAA
     Dosage: WEEK 4
     Route: 058
     Dates: start: 20200830
  2. SKYRIZI [Suspect]
     Active Substance: RISANKIZUMAB-RZAA
     Indication: PSORIASIS
     Dosage: WEEK 1
     Route: 058
     Dates: start: 20200802, end: 202008

REACTIONS (2)
  - Intestinal mass [Recovering/Resolving]
  - Non-Hodgkin^s lymphoma [Not Recovered/Not Resolved]

NARRATIVE: CASE EVENT DATE: 2020
